FAERS Safety Report 4319170-9 (Version None)
Quarter: 2004Q1

REPORT INFORMATION
  Report Type: 
  Country: None (occurrence: None)
  Receive Date: 20040316
  Receipt Date: 20040301
  Transmission Date: 20041129
  Serious: Yes (Hospitalization)
  Sender: FDA-Public Use
  Company Number: FR_040303680

PATIENT
  Age: 34 Year
  Sex: Female

DRUGS (17)
  1. ZYPREXA [Suspect]
     Indication: PSYCHOTIC DISORDER
     Dosage: UNK
     Route: 065
  2. TRANZENE (CLORAZEPATE DIPOTASSIUM) [Concomitant]
  3. ALCOHOL [Concomitant]
  4. KETOCONAZOLE [Concomitant]
  5. NOCTAMIDE (LORMETAZEPAM) [Concomitant]
  6. TERCIAN (CYAMEMAZINE) [Concomitant]
  7. ATARAX [Concomitant]
  8. IMOVANE (ZOPICLONE) [Concomitant]
  9. AUGMENTIN [Concomitant]
  10. MUCOMYST [Concomitant]
  11. LYSOPAINE [Concomitant]
  12. OROPIVALONE [Concomitant]
  13. ACETAMINOPHEN [Concomitant]
  14. KETOPROFEN [Concomitant]
  15. MYOLASTAN (TETRAZEPAM) [Concomitant]
  16. LEPTICUR (TROPATEPINE HYDROCHLORIDE) [Concomitant]
  17. LOXAPINE SUCCINATE [Concomitant]

REACTIONS (4)
  - COMPLICATIONS OF MATERNAL EXPOSURE TO THERAPEUTIC DRUGS [None]
  - FALL [None]
  - OVERDOSE [None]
  - SUICIDE ATTEMPT [None]
